FAERS Safety Report 21937362 (Version 1)
Quarter: 2023Q1

REPORT INFORMATION
  Report Type: Spontaneous
  Country: US (occurrence: None)
  Receive Date: 20230131
  Receipt Date: 20230131
  Transmission Date: 20230418
  Serious: No
  Sender: FDA-Public Use
  Company Number: None

PATIENT
  Sex: Female

DRUGS (3)
  1. ENBREL [Suspect]
     Active Substance: ETANERCEPT
     Indication: Psoriatic arthropathy
     Dosage: 50 MG/ML SUBCUTANEOUS??INJECT 50MG UNDER THE SKIN (SUBCUTANEOUS INJECTION) ONCE A WEEK?
     Route: 058
     Dates: start: 20190223
  2. CLARITIN [Concomitant]
  3. TYLENOL [Concomitant]

REACTIONS (5)
  - Surgery [None]
  - Therapy cessation [None]
  - Psoriasis [None]
  - Loss of personal independence in daily activities [None]
  - Pain [None]
